FAERS Safety Report 22388064 (Version 1)
Quarter: 2023Q2

REPORT INFORMATION
  Report Type: Spontaneous
  Country: US (occurrence: None)
  Receive Date: 20230530
  Receipt Date: 20230530
  Transmission Date: 20230722
  Serious: No
  Sender: FDA-Public Use
  Company Number: None

PATIENT
  Sex: Female

DRUGS (12)
  1. CAPECITABINE [Suspect]
     Active Substance: CAPECITABINE
     Indication: Breast cancer female
     Dosage: OTHER QUANTITY : 3T AM 4T PM;?FREQUENCY : DAILY;?
     Route: 048
  2. CRESTOR [Concomitant]
     Active Substance: ROSUVASTATIN CALCIUM
     Dosage: 3T AN 4T PM QD PO 7D ON/ 7D OFF
     Route: 048
  3. RANEXA [Concomitant]
     Active Substance: RANOLAZINE
  4. SERTRALINE [Concomitant]
     Active Substance: SERTRALINE HYDROCHLORIDE
  5. REPATHA [Concomitant]
     Active Substance: EVOLOCUMAB
  6. CLOBETASOL [Concomitant]
     Active Substance: CLOBETASOL
  7. ONDANSETRON [Concomitant]
     Active Substance: ONDANSETRON
  8. LOSARTAN [Concomitant]
     Active Substance: LOSARTAN
  9. METOPROLOL [Concomitant]
     Active Substance: METOPROLOL
  10. MEDROL [Concomitant]
     Active Substance: METHYLPREDNISOLONE
  11. EXEMESTANE [Concomitant]
     Active Substance: EXEMESTANE
  12. LETROZOLE [Concomitant]
     Active Substance: LETROZOLE

REACTIONS (4)
  - Palmar-plantar erythrodysaesthesia syndrome [None]
  - COVID-19 [None]
  - Influenza [None]
  - Therapy interrupted [None]
